FAERS Safety Report 19378398 (Version 1)
Quarter: 2021Q2

REPORT INFORMATION
  Report Type: Spontaneous
  Country: US (occurrence: US)
  Receive Date: 20210605
  Receipt Date: 20210605
  Transmission Date: 20210717
  Serious: No
  Sender: FDA-Public Use
  Company Number: US-SA-2021SA185339

PATIENT
  Sex: Female

DRUGS (2)
  1. DUPIXENT [Suspect]
     Active Substance: DUPILUMAB
     Indication: ASTHMA
  2. NUCALA [Concomitant]
     Active Substance: MEPOLIZUMAB

REACTIONS (2)
  - Corneal oedema [Not Recovered/Not Resolved]
  - Eye swelling [Not Recovered/Not Resolved]
